FAERS Safety Report 17135941 (Version 3)
Quarter: 2020Q1

REPORT INFORMATION
  Report Type: Spontaneous
  Country: US (occurrence: US)
  Receive Date: 20191210
  Receipt Date: 20200310
  Transmission Date: 20200409
  Serious: No
  Sender: FDA-Public Use
  Company Number: US-JNJFOC-20191208423

PATIENT
  Sex: Male
  Weight: 70.37 kg

DRUGS (1)
  1. STELARA [Suspect]
     Active Substance: USTEKINUMAB
     Indication: PSORIASIS
     Dosage: STRENGTH: 45 MG/ 0.50 ML
     Route: 058
     Dates: start: 2017

REACTIONS (3)
  - Product dose omission [Unknown]
  - Syringe issue [Unknown]
  - Product label issue [Unknown]

NARRATIVE: CASE EVENT DATE: 2019
